FAERS Safety Report 14703849 (Version 2)
Quarter: 2018Q2

REPORT INFORMATION
  Report Type: Spontaneous
  Country: US (occurrence: US)
  Receive Date: 20180402
  Receipt Date: 20180404
  Transmission Date: 20180711
  Serious: No
  Sender: FDA-Public Use
  Company Number: US-PFIZER INC-2018130320

PATIENT
  Age: 53 Year
  Sex: Female

DRUGS (3)
  1. METHOTREXATE SODIUM. [Suspect]
     Active Substance: METHOTREXATE SODIUM
     Dosage: 0.8 ML, WEEKLY (25 MG/ML INJECT 0.8 ML SUBCUTANEOUS EVERY WEEK)
     Route: 058
  2. ENBREL [Suspect]
     Active Substance: ETANERCEPT
     Dosage: 1 ML, WEEKLY (0.98 ML) (50MG/ML (0.98 ML) SUBCUTANEOUS 1 ML EVERY WEEK)
     Route: 058
     Dates: start: 201604, end: 201606
  3. ENBREL [Suspect]
     Active Substance: ETANERCEPT
     Dosage: UNK
     Dates: start: 201604, end: 201606

REACTIONS (1)
  - Drug ineffective [Unknown]
